FAERS Safety Report 8790565 (Version 1)
Quarter: 2012Q4

REPORT INFORMATION
  Report Type: Spontaneous
  Country: UA (occurrence: None)
  Receive Date: 20120910
  Receipt Date: 20120910
  Transmission Date: 20130627
  Serious: Yes (Other)
  Sender: FDA-Public Use
  Company Number: GPV/UKR/12/0025718

PATIENT
  Age: 57 Year
  Sex: Male

DRUGS (1)
  1. CARVIDEX [Suspect]
     Indication: CORONARY DISEASE
     Route: 048
     Dates: start: 20110918

REACTIONS (3)
  - Dyspnoea exertional [None]
  - Rash [None]
  - Dry mouth [None]
